FAERS Safety Report 5749048-5 (Version None)
Quarter: 2008Q2

REPORT INFORMATION
  Report Type: 
  Country: None (occurrence: None)
  Receive Date: 20080527
  Receipt Date: 20080521
  Transmission Date: 20081010
  Serious: Yes (Death, Hospitalization, Other)
  Sender: FDA-Public Use
  Company Number: JP-BRISTOL-MYERS SQUIBB COMPANY-13754312

PATIENT
  Age: 32 Year
  Sex: Male

DRUGS (9)
  1. EFAVIRENZ [Suspect]
     Indication: ACQUIRED IMMUNODEFICIENCY SYNDROME
     Route: 048
     Dates: start: 20060217, end: 20060719
  2. ENDOXAN [Suspect]
     Indication: PLASMABLASTIC LYMPHOMA
     Dosage: DOSE TAKEN ON 23FEB06-27FEB06(5DAY), 17MAR06-21MAR06(5DAY) AND 11APR06(1DAY)
     Route: 042
     Dates: start: 20060223, end: 20060411
  3. RETROVIR [Suspect]
     Indication: ACQUIRED IMMUNODEFICIENCY SYNDROME
     Route: 048
     Dates: start: 20060217, end: 20060719
  4. ADRIACIN [Suspect]
     Indication: PLASMABLASTIC LYMPHOMA
     Dosage: DOSE TAKEN ON 23FEB06-27FEB06(5DAY); 17MAR06-21MAR06(5DAY); 11APR06(1DAY)
     Route: 042
     Dates: start: 20060223, end: 20060411
  5. ONCOVIN [Suspect]
     Indication: PLASMABLASTIC LYMPHOMA
     Dosage: DOSE TAKEN ON 23FEB06-27FEB06(5DAY); 17MAR06-21MAR06(5DAY); 11APR06(1DAY)
     Route: 042
     Dates: start: 20060223, end: 20060411
  6. PREDONINE [Suspect]
     Indication: PLASMABLASTIC LYMPHOMA
     Dosage: DOSE TAKEN ON 23FEB06-27FEB06(5DAY); 17MAR06-21MAR06(5DAY)
     Route: 048
     Dates: start: 20060223, end: 20060321
  7. GANCICLOVIR SODIUM [Suspect]
     Indication: CYTOMEGALOVIRUS ENTEROCOLITIS
     Dosage: 5MG/KG18FEB-07APR,2.5MG/KG08APR-12APR,1MG/KG13APR-08MAY,30JUN-19JUL+3.5MG/KG31MAY-29JUN06
     Route: 042
     Dates: start: 20060218, end: 20060719
  8. EPIVIR [Concomitant]
     Indication: ACQUIRED IMMUNODEFICIENCY SYNDROME
     Route: 048
     Dates: start: 20060217, end: 20060719
  9. PENTAMIDINE ISETHIONATE [Concomitant]
     Dates: end: 20060719

REACTIONS (2)
  - BONE MARROW FAILURE [None]
  - MULTI-ORGAN FAILURE [None]
